FAERS Safety Report 9247513 (Version 1)
Quarter: 2013Q2

REPORT INFORMATION
  Report Type: Spontaneous
  Country: US (occurrence: US)
  Receive Date: 20130423
  Receipt Date: 20130423
  Transmission Date: 20140414
  Serious: No
  Sender: FDA-Public Use
  Company Number: US-BAYER-2013-048703

PATIENT
  Age: 67 Year
  Sex: Female

DRUGS (11)
  1. BETASERON [Suspect]
     Dosage: 0.25 MG, QOD
     Route: 058
  2. TOPAMAX [Concomitant]
     Dosage: 200 MG, UNK
  3. COUMADIN [Concomitant]
     Dosage: 5 MG, UNK
  4. NEURONTIN [Concomitant]
     Dosage: 100 MG, UNK
  5. METFORMIN [Concomitant]
     Dosage: 500 MG, UNK
  6. SIMVASTATIN [Concomitant]
  7. BACLOFEN [Concomitant]
     Dosage: 10 MG, UNK
  8. AMPYRA [Concomitant]
     Dosage: 10 MG, UNK
  9. OMEGA-3 [Concomitant]
  10. MULTIVITAMIN [Concomitant]
  11. COLECALCIFEROL [Concomitant]

REACTIONS (3)
  - Weight increased [Unknown]
  - Hepatic enzyme increased [Unknown]
  - Neuralgia [Unknown]
